FAERS Safety Report 20153201 (Version 11)
Quarter: 2023Q1

REPORT INFORMATION
  Report Type: Report from Study
  Country: DE (occurrence: DE)
  Receive Date: 20211206
  Receipt Date: 20230327
  Transmission Date: 20230417
  Serious: Yes (Hospitalization, Other)
  Sender: FDA-Public Use
  Company Number: DE-NOVARTISPH-NVSC2021DE208861

PATIENT
  Age: 85 Year
  Sex: Female

DRUGS (9)
  1. KISQALI [Suspect]
     Active Substance: RIBOCICLIB
     Indication: Hormone receptor positive HER2 negative breast cancer
     Dosage: 600 MG (SCHEMA 21 DAYS INTAKE, 7 DAYS PAUSE)
     Route: 048
     Dates: start: 20200420, end: 20210303
  2. KISQALI [Suspect]
     Active Substance: RIBOCICLIB
     Dosage: 600 MG (SCHEMA 21 DAYS INTAKE, 7 DAYS PAUSE)
     Route: 048
     Dates: start: 20210401, end: 20210618
  3. LETROZOLE [Suspect]
     Active Substance: LETROZOLE
     Indication: Breast cancer metastatic
     Dosage: 2.5 MG, QD
     Route: 048
     Dates: start: 20200420, end: 20210618
  4. ZOMETA [Suspect]
     Active Substance: ZOLEDRONIC ACID
     Indication: Prophylaxis
     Dosage: 4 MG, Q4W
     Route: 042
     Dates: start: 20120328, end: 20210929
  5. HEPARIN [Suspect]
     Active Substance: HEPARIN SODIUM
     Indication: Atrial fibrillation
     Dosage: 7500 IU (ONCE IN THE MORNING, ONCE IN THE NOON, ONCE IN THE AFTERNOON)
     Route: 058
     Dates: start: 20210807, end: 20211015
  6. HALOPERIDOL [Concomitant]
     Active Substance: HALOPERIDOL
     Indication: Product used for unknown indication
     Dosage: UNK
     Route: 065
  7. UNSPECIFIED INGREDIENT [Concomitant]
     Active Substance: UNSPECIFIED INGREDIENT
     Indication: Product used for unknown indication
     Dosage: UNK
     Route: 065
  8. VITAMIN D3 [Concomitant]
     Active Substance: CHOLECALCIFEROL
     Indication: Product used for unknown indication
     Dosage: UNK
     Route: 065
  9. TORSEMIDE [Concomitant]
     Active Substance: TORSEMIDE
     Indication: Product used for unknown indication
     Dosage: 5 MG, QD, 1X 5 MG (1 X DAILY MORNING)
     Route: 065

REACTIONS (12)
  - Lower gastrointestinal haemorrhage [Recovered/Resolved]
  - Urinary tract infection [Recovered/Resolved]
  - Hepatic cirrhosis [Not Recovered/Not Resolved]
  - Decreased appetite [Unknown]
  - End stage renal disease [Recovering/Resolving]
  - Dehydration [Unknown]
  - Tachycardia [Unknown]
  - Blood creatinine increased [Not Recovered/Not Resolved]
  - Anaemia [Recovering/Resolving]
  - Atrial fibrillation [Not Recovered/Not Resolved]
  - Metabolic acidosis [Recovering/Resolving]
  - Escherichia urinary tract infection [Recovered/Resolved]

NARRATIVE: CASE EVENT DATE: 20210512
